FAERS Safety Report 9262436 (Version 1)
Quarter: 2013Q2

REPORT INFORMATION
  Report Type: Spontaneous
  Country: US (occurrence: None)
  Receive Date: 20130425
  Receipt Date: 20130425
  Transmission Date: 20140414
  Serious: Yes (Other)
  Sender: FDA-Public Use
  Company Number: None

PATIENT
  Age: 60 Year
  Sex: Female
  Weight: 74.84 kg

DRUGS (2)
  1. BUPROPION [Suspect]
     Indication: DEPRESSION
     Dosage: 2 X DAILY 6HRS APA
     Route: 048
     Dates: start: 20130105, end: 20130308
  2. BUPROPION [Suspect]
     Dosage: 2 X DAILY 6HRS APA
     Route: 048
     Dates: start: 20130105, end: 20130308

REACTIONS (6)
  - Product taste abnormal [None]
  - Product odour abnormal [None]
  - Headache [None]
  - Nausea [None]
  - Product substitution issue [None]
  - Product quality issue [None]
